FAERS Safety Report 11107407 (Version 1)
Quarter: 2015Q2

REPORT INFORMATION
  Report Type: Spontaneous
  Country: US (occurrence: US)
  Receive Date: 20150512
  Receipt Date: 20150512
  Transmission Date: 20150821
  Serious: Yes (Hospitalization)
  Sender: FDA-Public Use
  Company Number: US-GLAXOSMITHKLINE-US2015063403

PATIENT
  Age: 44 Year
  Sex: Female

DRUGS (1)
  1. REQUIP XL [Suspect]
     Active Substance: ROPINIROLE HYDROCHLORIDE
     Indication: RESTLESS LEGS SYNDROME
     Dosage: 8 MG, QD
     Route: 048
     Dates: start: 201001

REACTIONS (2)
  - Bronchitis [Unknown]
  - Infectious colitis [Unknown]

NARRATIVE: CASE EVENT DATE: 201411
